FAERS Safety Report 8819927 (Version 5)
Quarter: 2014Q3

REPORT INFORMATION
  Report Type: Spontaneous
  Country: US (occurrence: US)
  Receive Date: 20121001
  Receipt Date: 20140805
  Transmission Date: 20150326
  Serious: Yes (Hospitalization, Other)
  Sender: FDA-Public Use
  Company Number: US-009507513-2012SP029904

PATIENT
  Sex: Female
  Weight: 82.54 kg

DRUGS (4)
  1. NUVARING [Suspect]
     Active Substance: ETHINYL ESTRADIOL\ETONOGESTREL
     Indication: CONTRACEPTION
     Dosage: UNK
     Route: 067
     Dates: start: 200901, end: 20090603
  2. SERTRALINE HYDROCHLORIDE. [Concomitant]
     Active Substance: SERTRALINE HYDROCHLORIDE
     Indication: DEPRESSION
  3. SERTRALINE HYDROCHLORIDE. [Concomitant]
     Active Substance: SERTRALINE HYDROCHLORIDE
     Indication: ANXIETY
  4. ESTROGEN NOS [Suspect]
     Active Substance: ESTROGENS
     Dosage: UNK
     Dates: start: 200904

REACTIONS (14)
  - Female sterilisation [Unknown]
  - Pulmonary embolism [Unknown]
  - Chest pain [Unknown]
  - Device expulsion [Unknown]
  - Sinus disorder [Unknown]
  - Constipation [Unknown]
  - Headache [Recovering/Resolving]
  - Menometrorrhagia [Unknown]
  - Asthma [Unknown]
  - Dental operation [Unknown]
  - Skin graft [Unknown]
  - Palpitations [Unknown]
  - Rash [Unknown]
  - Amenorrhoea [Unknown]

NARRATIVE: CASE EVENT DATE: 2009
